FAERS Safety Report 5863843-3 (Version None)
Quarter: 2008Q3

REPORT INFORMATION
  Report Type: 
  Country: None (occurrence: None)
  Receive Date: 20080827
  Receipt Date: 20080813
  Transmission Date: 20090109
  Serious: Yes (Other)
  Sender: FDA-Public Use
  Company Number: 8035993

PATIENT
  Sex: Male

DRUGS (3)
  1. XYZAL [Suspect]
     Indication: URTICARIA
     Dosage: 20 MG/D PO
     Route: 048
  2. XYZAL [Suspect]
     Indication: URTICARIA
     Dosage: 5 MG 2/D PO
     Route: 048
  3. ALLEGRA [Suspect]
     Indication: URTICARIA
     Dosage: 720 MG/D PO
     Route: 048

REACTIONS (3)
  - BLOOD PRESSURE DECREASED [None]
  - GASTROOESOPHAGEAL REFLUX DISEASE [None]
  - OVERDOSE [None]
